FAERS Safety Report 6786022-4 (Version None)
Quarter: 2010Q2

REPORT INFORMATION
  Report Type: 
  Country: None (occurrence: None)
  Receive Date: 20100621
  Receipt Date: 20100621
  Transmission Date: 20101027
  Serious: Yes (Death, Hospitalization)
  Sender: FDA-Public Use
  Company Number: None

PATIENT
  Sex: Female
  Weight: 31.2 kg

DRUGS (5)
  1. DOXORUBICIN HCL [Suspect]
     Dosage: 80.4 MG
     Dates: end: 20100608
  2. DEXAMETHASONE [Suspect]
     Dosage: 99 MG
     Dates: end: 20100613
  3. VINCRISTINE SULFATE [Suspect]
     Dosage: 4.8 MG
     Dates: end: 20100608
  4. METHOTREXATE [Suspect]
     Dosage: 12 MG
     Dates: end: 20100525
  5. PEG-L-ASPARAGINASE(K-H) [Suspect]
     Dosage: 2675 IU
     Dates: end: 20090528

REACTIONS (6)
  - CARDIO-RESPIRATORY ARREST [None]
  - DISSEMINATED INTRAVASCULAR COAGULATION [None]
  - NEUTROPENIA [None]
  - NO THERAPEUTIC RESPONSE [None]
  - PSEUDOMONAS TEST POSITIVE [None]
  - SEPSIS [None]
